APPROVED DRUG PRODUCT: TESTOSTERONE CYPIONATE
Active Ingredient: TESTOSTERONE CYPIONATE
Strength: 200MG/ML
Dosage Form/Route: INJECTABLE;INJECTION
Application: A040530 | Product #001 | TE Code: AO
Applicant: PADAGIS US LLC
Approved: Jan 31, 2005 | RLD: No | RS: No | Type: RX